FAERS Safety Report 14493319 (Version 1)
Quarter: 2018Q1

REPORT INFORMATION
  Report Type: Spontaneous
  Country: NL (occurrence: NL)
  Receive Date: 20180206
  Receipt Date: 20180206
  Transmission Date: 20180509
  Serious: Yes (Death, Hospitalization)
  Sender: FDA-Public Use
  Company Number: NL-NAPPMUNDI-GBR-2018-0052883

PATIENT
  Sex: Female

DRUGS (1)
  1. OXYCODONE HYDROCHLORIDE. [Suspect]
     Active Substance: OXYCODONE HYDROCHLORIDE
     Indication: CONTUSION
     Route: 065

REACTIONS (3)
  - Death [Fatal]
  - Product use in unapproved indication [Fatal]
  - Constipation [Fatal]
